FAERS Safety Report 4292311-8 (Version None)
Quarter: 2004Q1

REPORT INFORMATION
  Report Type: 
  Country: None (occurrence: None)
  Receive Date: 20040126
  Receipt Date: 20031006
  Transmission Date: 20041129
  Serious: No
  Sender: FDA-Public Use
  Company Number: USA031049091

PATIENT
  Age: 79 Year
  Sex: Female
  Weight: 55 kg

DRUGS (11)
  1. FORTEO [Suspect]
     Indication: OSTEOPOROSIS
     Dosage: 20 UG/DAY
     Dates: start: 20030621
  2. PROZAC [Concomitant]
  3. METHOTREXATE [Concomitant]
  4. DARVOCET-N 100 [Concomitant]
  5. TIAZAC [Concomitant]
  6. LIPITOR [Concomitant]
  7. CLINORIL [Concomitant]
  8. MACRODANTIN [Concomitant]
  9. PREDNISONE [Concomitant]
  10. ATIVAN [Concomitant]
  11. VITAMINS NOS [Concomitant]

REACTIONS (5)
  - AMNESIA [None]
  - APATHY [None]
  - DISTURBANCE IN ATTENTION [None]
  - FATIGUE [None]
  - MEMORY IMPAIRMENT [None]
